FAERS Safety Report 6153750-3 (Version None)
Quarter: 2009Q2

REPORT INFORMATION
  Report Type: 
  Country: None (occurrence: None)
  Receive Date: 20090410
  Receipt Date: 20090331
  Transmission Date: 20091009
  Serious: No
  Sender: FDA-Public Use
  Company Number: 1022556-2009-00025

PATIENT
  Sex: Male

DRUGS (1)
  1. ICY HOT ARM, NECK, LEG PATCH [Suspect]
     Indication: JOINT SPRAIN
     Dosage: 1X, TOPICAL
     Route: 061
     Dates: start: 20080220

REACTIONS (4)
  - APPLICATION SITE BURN [None]
  - APPLICATION SITE IRRITATION [None]
  - ILL-DEFINED DISORDER [None]
  - LOCALISED INFECTION [None]
